FAERS Safety Report 6082857-4 (Version None)
Quarter: 2009Q1

REPORT INFORMATION
  Report Type: 
  Country: None (occurrence: None)
  Receive Date: 20090218
  Receipt Date: 20090213
  Transmission Date: 20090719
  Serious: Yes (Death, Hospitalization)
  Sender: FDA-Public Use
  Company Number: US-CELGENEUS-163-21880-08121095

PATIENT
  Sex: Male
  Weight: 82.628 kg

DRUGS (20)
  1. REVLIMID [Suspect]
     Route: 048
     Dates: start: 20081108, end: 20081214
  2. VYTORIN [Concomitant]
     Indication: DRUG USE FOR UNKNOWN INDICATION
     Dosage: 10/20
     Route: 065
  3. COUMADIN [Concomitant]
     Indication: DRUG USE FOR UNKNOWN INDICATION
     Route: 048
  4. AVANDAMET [Concomitant]
     Indication: DRUG USE FOR UNKNOWN INDICATION
     Dosage: 2-500MG
     Route: 065
  5. NIASPAN [Concomitant]
     Indication: DRUG USE FOR UNKNOWN INDICATION
     Route: 048
  6. SOTALOL HCL [Concomitant]
     Indication: DRUG USE FOR UNKNOWN INDICATION
     Route: 048
  7. SOTALOL HCL [Concomitant]
     Route: 048
  8. EXFORGE [Concomitant]
     Indication: DRUG USE FOR UNKNOWN INDICATION
     Dosage: 5-160MG
     Route: 048
  9. EXFORGE [Concomitant]
     Dosage: 10/320 MG
     Route: 048
  10. LIPOFEN [Concomitant]
     Indication: DRUG USE FOR UNKNOWN INDICATION
     Route: 048
  11. PROCRIT [Concomitant]
     Indication: DRUG USE FOR UNKNOWN INDICATION
     Route: 050
     Dates: start: 20081101
  12. DOXY-CAPS [Concomitant]
     Indication: DRUG USE FOR UNKNOWN INDICATION
     Route: 048
  13. RED BLOOD CELLS [Concomitant]
     Route: 051
     Dates: start: 20081101, end: 20081101
  14. RED BLOOD CELLS [Concomitant]
     Route: 051
     Dates: start: 20080101, end: 20080101
  15. SODIUM CHLORIDE [Concomitant]
     Indication: DRUG USE FOR UNKNOWN INDICATION
     Dosage: 75 CC
     Route: 051
     Dates: start: 20081201
  16. ZOSYN [Concomitant]
     Indication: DRUG USE FOR UNKNOWN INDICATION
     Route: 051
     Dates: start: 20080101
  17. VITAMIN K [Concomitant]
     Indication: DRUG USE FOR UNKNOWN INDICATION
     Route: 065
     Dates: start: 20080101
  18. NEXIUM [Concomitant]
     Indication: DRUG USE FOR UNKNOWN INDICATION
     Route: 048
  19. METFORMIN HCL [Concomitant]
     Indication: DRUG USE FOR UNKNOWN INDICATION
     Route: 065
  20. NORVASC [Concomitant]
     Indication: DRUG USE FOR UNKNOWN INDICATION
     Route: 065

REACTIONS (12)
  - ABDOMINAL PAIN [None]
  - ANOREXIA [None]
  - ARTHRALGIA [None]
  - CARDIOVASCULAR DISORDER [None]
  - DRY SKIN [None]
  - HEPATOMEGALY [None]
  - NAUSEA [None]
  - OEDEMA PERIPHERAL [None]
  - PNEUMONIA STAPHYLOCOCCAL [None]
  - PYREXIA [None]
  - RASH [None]
  - WEIGHT DECREASED [None]
